FAERS Safety Report 6539354-9 (Version None)
Quarter: 2010Q1

REPORT INFORMATION
  Report Type: 
  Country: None (occurrence: None)
  Receive Date: 20100111
  Receipt Date: 20091015
  Transmission Date: 20100710
  Serious: Yes (Hospitalization)
  Sender: FDA-Public Use
  Company Number: AUR-APL-2009-01022

PATIENT
  Age: 74 Year
  Sex: Male
  Weight: 68.0396 kg

DRUGS (10)
  1. METOPROLOL TARTRATE [Suspect]
     Dosage: 100MG - DAILY- ORAL 25MG - DAILY - ORAL
     Route: 048
     Dates: start: 20000101, end: 20091011
  2. METOPROLOL TARTRATE [Suspect]
     Dosage: 100MG - DAILY- ORAL 25MG - DAILY - ORAL
     Route: 048
     Dates: start: 20091011, end: 20091015
  3. BLINDED THERAPY (DIMEBON OR PLACEBO) [Suspect]
     Indication: DEMENTIA ALZHEIMER'S TYPE
     Dosage: 20MG TABLET - TID - ORAL
     Route: 048
     Dates: start: 20090801, end: 20091014
  4. ARICEPT [Concomitant]
  5. NAMENDA [Concomitant]
  6. METFORMIN HYDROCHLORIDE [Concomitant]
  7. ISORDIL [Concomitant]
  8. SIMVASTATIN [Concomitant]
  9. ASPIRIN [Concomitant]
  10. SINGULAIR [Concomitant]

REACTIONS (1)
  - BRADYCARDIA [None]
